FAERS Safety Report 5955836-2 (Version None)
Quarter: 2008Q4

REPORT INFORMATION
  Report Type: 
  Country: None (occurrence: None)
  Receive Date: 20081117
  Receipt Date: 20081105
  Transmission Date: 20090506
  Serious: Yes (Death, Hospitalization)
  Sender: FDA-Public Use
  Company Number: DE-PFIZER INC-2008094496

PATIENT
  Sex: Female
  Weight: 92 kg

DRUGS (8)
  1. ZYVOXID [Suspect]
     Indication: PNEUMONIA STAPHYLOCOCCAL
     Dosage: TEXT:600MG AT DIFFERENT DAILY DOSES
     Route: 042
     Dates: start: 20070808, end: 20080816
  2. AVELOX [Suspect]
     Dosage: DAILY DOSE:400MG
     Route: 042
     Dates: start: 20070726, end: 20070726
  3. AVELOX [Suspect]
     Dosage: DAILY DOSE:400MG-FREQ:ONCE DAILY
     Route: 048
     Dates: start: 20070727, end: 20080805
  4. CEFUROXIME [Suspect]
     Indication: URINARY TRACT INFECTION
     Route: 042
     Dates: start: 20070806, end: 20070806
  5. CEFUROXIME [Suspect]
     Route: 042
     Dates: start: 20070807, end: 20070807
  6. CEFUROXIME [Suspect]
     Route: 042
     Dates: start: 20070807, end: 20070815
  7. ASPIRIN [Concomitant]
     Route: 048
     Dates: end: 20070601
  8. INSULIN [Concomitant]
     Dates: start: 20000101, end: 20070601

REACTIONS (4)
  - BLOOD BILIRUBIN INCREASED [None]
  - HEPATIC FAILURE [None]
  - HEPATITIS ACUTE [None]
  - TRANSAMINASES INCREASED [None]
